FAERS Safety Report 6287644-X (Version None)
Quarter: 2009Q4

REPORT INFORMATION
  Report Type: 
  Country: None (occurrence: None)
  Receive Date: 20090727
  Receipt Date: 20090727
  Transmission Date: 20100525
  Serious: No
  Sender: FDA-Public Use
  Company Number: None

PATIENT
  Age: 59 Year
  Sex: Female

DRUGS (15)
  1. TESSALON [Suspect]
     Dosage: 200 MG TID
     Dates: start: 20070907, end: 20071026
  2. SYNTHROID [Concomitant]
  3. NAPROSYN [Concomitant]
  4. FAMOTIDINE AND PEPCID AC [Concomitant]
  5. CHLORPHENIRAMINE MALEATE [Concomitant]
  6. PRILOSEC [Concomitant]
  7. NASAREL [Concomitant]
  8. PROMETHAZINE W/ CODEINE [Concomitant]
  9. LORATADINE [Concomitant]
  10. ^MOVE FREE^ (GLUCOSAMINE HYDROCHLORIDE) [Concomitant]
  11. ^TRIPLE FLEX^ (GLUCOSAMINE) [Concomitant]
  12. MULTIVITAMIN WITHOUT IRON [Concomitant]
  13. VITAMIN B COMPLEX CAP [Concomitant]
  14. ASCORBIC ACID [Concomitant]
  15. CALCIUM [Concomitant]

REACTIONS (3)
  - CHOLESTASIS [None]
  - HEPATITIS [None]
  - LIVER INJURY [None]
